FAERS Safety Report 6377851-X (Version None)
Quarter: 2009Q3

REPORT INFORMATION
  Report Type: 
  Country: None (occurrence: None)
  Receive Date: 20090925
  Receipt Date: 20090306
  Transmission Date: 20100115
  Serious: No
  Sender: FDA-Public Use
  Company Number: US-ABBOTT-08P-163-0487512-00

PATIENT
  Sex: Male
  Weight: 84.898 kg

DRUGS (11)
  1. TRICOR [Suspect]
     Indication: BLOOD TRIGLYCERIDES INCREASED
     Dates: start: 20080101, end: 20081023
  2. TRICOR [Suspect]
     Indication: MIXED HYPERLIPIDAEMIA
  3. VYTORIN [Concomitant]
     Indication: MIXED HYPERLIPIDAEMIA
     Dosage: 10/40MG DAILY
  4. BENICAR [Concomitant]
     Indication: DRUG USE FOR UNKNOWN INDICATION
     Dosage: 40/75 DAILY
  5. LOPRESSOR [Concomitant]
     Indication: DRUG USE FOR UNKNOWN INDICATION
  6. AMARYL [Concomitant]
     Indication: DRUG USE FOR UNKNOWN INDICATION
  7. FLOMAX [Concomitant]
     Indication: DRUG USE FOR UNKNOWN INDICATION
  8. LACTULOSE [Concomitant]
     Indication: DRUG USE FOR UNKNOWN INDICATION
  9. ELAVIL [Concomitant]
     Indication: DRUG USE FOR UNKNOWN INDICATION
  10. STELAZINE [Concomitant]
     Indication: DRUG USE FOR UNKNOWN INDICATION
  11. UNKNOWN DRUG [Concomitant]
     Indication: DRUG USE FOR UNKNOWN INDICATION

REACTIONS (1)
  - HIGH DENSITY LIPOPROTEIN DECREASED [None]
